FAERS Safety Report 8406071-X (Version None)
Quarter: 2012Q2

REPORT INFORMATION
  Report Type: 
  Country: None (occurrence: None)
  Receive Date: 20120323
  Receipt Date: 20110726
  Transmission Date: 20120825
  Serious: Yes (Other)
  Sender: FDA-Public Use
  Company Number: 163-21880-11011716

PATIENT
  Age: 91 Year
  Sex: Male

DRUGS (7)
  1. XALATAN (LATANOPROST)(UNKNOWN) [Concomitant]
  2. REVLIMID [Suspect]
     Indication: MULTIPLE MYELOMA
     Dosage: 25 MG, DAILY 21/28, PO, 10 MG, DAILY 21/28, PO
     Route: 048
     Dates: start: 20101220
  3. REVLIMID [Suspect]
     Indication: MULTIPLE MYELOMA
     Dosage: 25 MG, DAILY 21/28, PO, 10 MG, DAILY 21/28, PO
     Route: 048
     Dates: start: 20110125
  4. LOTREL (LOTREL)(UNKNOWN) [Concomitant]
  5. DEXAMETHASONE [Concomitant]
  6. ASA (ACETYLSALICYLIC [Concomitant]
  7. SYNTHROID [Concomitant]

REACTIONS (4)
  - DIZZINESS [None]
  - TREMOR [None]
  - BLOOD CREATININE INCREASED [None]
  - ANAEMIA [None]
